FAERS Safety Report 23724881 (Version 2)
Quarter: 2024Q2

REPORT INFORMATION
  Report Type: Report from Study
  Country: US (occurrence: US)
  Receive Date: 20240410
  Receipt Date: 20240514
  Transmission Date: 20240715
  Serious: Yes (Death, Other)
  Sender: FDA-Public Use
  Company Number: US-BEH-2024170316

PATIENT

DRUGS (1)
  1. HUMAN IMMUNOGLOBULIN G [Suspect]
     Active Substance: HUMAN IMMUNOGLOBULIN G
     Indication: Neonatal haemochromatosis
     Route: 042

REACTIONS (3)
  - Neonatal haemochromatosis [Fatal]
  - Product availability issue [Unknown]
  - Off label use [Unknown]
